FAERS Safety Report 16100357 (Version 1)
Quarter: 2019Q1

REPORT INFORMATION
  Report Type: Spontaneous
  Country: FR (occurrence: FR)
  Receive Date: 20190321
  Receipt Date: 20190321
  Transmission Date: 20190418
  Serious: Yes (Other)
  Sender: FDA-Public Use
  Company Number: FR-MYLANLABS-2019M1025748

PATIENT
  Age: 66 Year
  Sex: Male
  Weight: 68 kg

DRUGS (7)
  1. LEVOFLOXACINE ARROW [Suspect]
     Active Substance: LEVOFLOXACIN
     Indication: LUNG DISORDER
     Dosage: 2 DOSAGE FORM, QD
     Route: 065
     Dates: start: 20180704, end: 20180716
  2. LOVENOX [Concomitant]
     Active Substance: ENOXAPARIN SODIUM
  3. AMLODIPINE [Concomitant]
     Active Substance: AMLODIPINE BESYLATE
  4. OMEPRAZOLE. [Concomitant]
     Active Substance: OMEPRAZOLE
  5. PIPERACILLIN,TAZOBACTAM MYLAN [Suspect]
     Active Substance: PIPERACILLIN SODIUM\TAZOBACTAM SODIUM
     Indication: LUNG DISORDER
     Dosage: 12 GRAM, QD
     Route: 042
     Dates: start: 20180703, end: 20180714
  6. DIAMOX                             /00016901/ [Concomitant]
     Active Substance: ACETAZOLAMIDE
  7. BACTRIM [Suspect]
     Active Substance: SULFAMETHOXAZOLE\TRIMETHOPRIM
     Indication: LUNG DISORDER
     Dosage: 2 DOSAGE FORM, QD
     Route: 048
     Dates: start: 20180704, end: 20180729

REACTIONS (1)
  - Mixed liver injury [Recovering/Resolving]

NARRATIVE: CASE EVENT DATE: 20180723
